FAERS Safety Report 8772186 (Version 1)
Quarter: 2012Q4

REPORT INFORMATION
  Report Type: 
  Country: BR (occurrence: BR)
  Receive Date: 20120905
  Receipt Date: 20120905
  Transmission Date: 20130627
  Serious: Yes (Other)
  Sender: FDA-Public Use
  Company Number: BR-JNJFOC-20120813114

PATIENT
  Age: 25 Year
  Sex: Male
  Weight: 85 kg

DRUGS (7)
  1. TOPAMAX [Suspect]
     Indication: EPILEPSY
     Route: 048
     Dates: start: 20120310
  2. HALDOL [Suspect]
     Indication: PRODUCT USED FOR UNKNOWN INDICATION
     Route: 048
  3. GARDENAL [Concomitant]
     Route: 065
  4. RIVOTRIL [Concomitant]
     Route: 065
  5. NEOZINE [Concomitant]
     Route: 065
  6. NEULEPTIL [Concomitant]
     Dosage: 40 drops
     Route: 065
  7. PROPRANOLOL [Concomitant]
     Route: 065

REACTIONS (2)
  - Weight decreased [Not Recovered/Not Resolved]
  - Decreased appetite [Not Recovered/Not Resolved]
